FAERS Safety Report 5690468-5 (Version None)
Quarter: 2008Q2

REPORT INFORMATION
  Report Type: 
  Country: None (occurrence: None)
  Receive Date: 20080401
  Receipt Date: 20040107
  Transmission Date: 20081010
  Serious: Yes (Death)
  Sender: FDA-Public Use
  Company Number: US-ROCHE-353308

PATIENT
  Age: 38 Year
  Sex: Female

DRUGS (3)
  1. ACCUTANE [Suspect]
     Route: 048
     Dates: start: 19991029
  2. INTERFERON ALFA-2A [Concomitant]
  3. CHEMOTHERAPY [Concomitant]

REACTIONS (1)
  - DISEASE PROGRESSION [None]
